FAERS Safety Report 8418994-6 (Version None)
Quarter: 2012Q2

REPORT INFORMATION
  Report Type: 
  Country: None (occurrence: None)
  Receive Date: 20120607
  Receipt Date: 20120601
  Transmission Date: 20120825
  Serious: Yes (Hospitalization, Other)
  Sender: FDA-Public Use
  Company Number: PHHY2012MX047867

PATIENT
  Sex: Male

DRUGS (2)
  1. BI-EUGLUCON [Concomitant]
     Indication: DIABETES MELLITUS
     Dosage: 4 DF, (500/50)MG, DAILY
  2. DIOVAN HCT [Suspect]
     Indication: HYPERTENSION
     Dosage: 2 DF, (160 MG VALS AND 12.5 MG HYDRO) DAILY

REACTIONS (2)
  - EPISTAXIS [None]
  - FLUID RETENTION [None]
